FAERS Safety Report 8937751 (Version 1)
Quarter: 2012Q4

REPORT INFORMATION
  Report Type: 
  Country: US (occurrence: US)
  Receive Date: 20121130
  Receipt Date: 20121130
  Transmission Date: 20130627
  Serious: No
  Sender: FDA-Public Use
  Company Number: US-VERTEX PHARMACEUTICAL INC.-2012-025351

PATIENT
  Age: 55 Year
  Sex: Male

DRUGS (6)
  1. VX-950 (TELAPREVIR) [Suspect]
     Indication: HEPATITIS C
     Dosage: 750 mg, tid
     Route: 048
  2. PEGASYS [Suspect]
  3. RIBAPAK [Suspect]
     Dosage: 1200/DAY
  4. LANTUS [Concomitant]
     Dosage: inj 100/ ML
  5. GEMFIBROZIL [Concomitant]
     Dosage: 600 mg, UNK
  6. AZOR                               /00595201/ [Concomitant]
     Dosage: 10-20 mg

REACTIONS (1)
  - Dyspnoea [Unknown]
